FAERS Safety Report 10874773 (Version 2)
Quarter: 2015Q2

REPORT INFORMATION
  Report Type: Spontaneous
  Country: JP (occurrence: JP)
  Receive Date: 20150227
  Receipt Date: 20150416
  Transmission Date: 20150821
  Serious: Yes (Death, Other)
  Sender: FDA-Public Use
  Company Number: JP-MUNDIPHARMA DS AND PHARMACOVIGILANCE-GBR-2015-0025849

PATIENT
  Age: 78 Year
  Sex: Male

DRUGS (4)
  1. OXYCONTIN [Suspect]
     Active Substance: OXYCODONE HYDROCHLORIDE
     Indication: CANCER PAIN
     Dosage: 100 MG, DAILY
     Route: 048
     Dates: start: 20150213, end: 20150217
  2. OXYCONTIN [Suspect]
     Active Substance: OXYCODONE HYDROCHLORIDE
     Dosage: 80 MG, DAILY
     Route: 048
  3. OPSO [Suspect]
     Active Substance: MORPHINE HYDROCHLORIDE
     Indication: CANCER PAIN
     Dosage: 20 MG, SINGLE
     Route: 048
     Dates: start: 20150213
  4. OPSO [Suspect]
     Active Substance: MORPHINE HYDROCHLORIDE
     Dosage: 10 MG, SINGLE
     Route: 048

REACTIONS (2)
  - Malignant neoplasm progression [Fatal]
  - Delirium [Unknown]

NARRATIVE: CASE EVENT DATE: 20150217
